FAERS Safety Report 7083623-3 (Version None)
Quarter: 2010Q4

REPORT INFORMATION
  Report Type: 
  Country: None (occurrence: None)
  Receive Date: 20101104
  Receipt Date: 20101020
  Transmission Date: 20110411
  Serious: Yes (Death)
  Sender: FDA-Public Use
  Company Number: CA-ROCHE-738546

PATIENT
  Sex: Male
  Weight: 101 kg

DRUGS (3)
  1. BEVACIZUMAB [Suspect]
     Indication: ANAPLASTIC ASTROCYTOMA
     Route: 042
     Dates: start: 20100715
  2. DECADRON [Concomitant]
  3. PANTOLOC [Concomitant]

REACTIONS (2)
  - DEATH [None]
  - DEHYDRATION [None]
